FAERS Safety Report 8519328-9 (Version None)
Quarter: 2012Q3

REPORT INFORMATION
  Report Type: 
  Country: None (occurrence: None)
  Receive Date: 20120718
  Receipt Date: 20120712
  Transmission Date: 20120928
  Serious: Yes (Other)
  Sender: FDA-Public Use
  Company Number: US-PFIZER INC-2012169430

PATIENT
  Sex: Female
  Weight: 113 kg

DRUGS (4)
  1. TOVIAZ [Suspect]
     Indication: RENAL DISORDER
     Dosage: 4 MG, DAILY
     Dates: start: 20120523
  2. SYMBICORT [Concomitant]
     Indication: CHRONIC OBSTRUCTIVE PULMONARY DISEASE
     Dosage: UNK,2X/DAY
  3. SPIRIVA [Concomitant]
     Indication: CHRONIC OBSTRUCTIVE PULMONARY DISEASE
     Dosage: UNK,DAILY
  4. TOVIAZ [Suspect]
     Dosage: 8 MG, DAILY
     Dates: start: 20120623

REACTIONS (3)
  - RESPIRATORY TRACT CONGESTION [None]
  - KIDNEY INFECTION [None]
  - LARYNGITIS [None]
